FAERS Safety Report 11917418 (Version 1)
Quarter: 2016Q1

REPORT INFORMATION
  Report Type: Spontaneous
  Country: US (occurrence: US)
  Receive Date: 20160114
  Receipt Date: 20160114
  Transmission Date: 20160526
  Serious: No
  Sender: FDA-Public Use
  Company Number: US-MEDA-2014120068

PATIENT
  Sex: Male

DRUGS (7)
  1. MUSE [Suspect]
     Active Substance: ALPROSTADIL
     Route: 066
     Dates: start: 201405
  2. MUSE [Suspect]
     Active Substance: ALPROSTADIL
     Route: 066
     Dates: start: 2014
  3. MUSE [Suspect]
     Active Substance: ALPROSTADIL
     Route: 066
     Dates: start: 2014
  4. AMLODIPINE BESILATE [Concomitant]
     Active Substance: AMLODIPINE BESYLATE
     Indication: BLOOD PRESSURE MEASUREMENT
     Route: 048
  5. GLIPIZIDE. [Concomitant]
     Active Substance: GLIPIZIDE
     Indication: DIABETES MELLITUS
     Route: 048
  6. ENALAPRIL MALEATE. [Concomitant]
     Active Substance: ENALAPRIL MALEATE
     Indication: BLOOD PRESSURE MEASUREMENT
     Route: 048
  7. LOVASTATIN. [Concomitant]
     Active Substance: LOVASTATIN
     Indication: HYPERTENSION

REACTIONS (5)
  - Penile burning sensation [Unknown]
  - Drug ineffective [Unknown]
  - Wrong technique in product usage process [Recovered/Resolved]
  - Product quality issue [Not Recovered/Not Resolved]
  - Penile pain [Unknown]

NARRATIVE: CASE EVENT DATE: 2014
